FAERS Safety Report 9655982 (Version 1)
Quarter: 2013Q4

REPORT INFORMATION
  Report Type: Spontaneous
  Country: US (occurrence: US)
  Receive Date: 20131030
  Receipt Date: 20131030
  Transmission Date: 20140711
  Serious: Yes (Hospitalization)
  Sender: FDA-Public Use
  Company Number: US-ASTRAZENECA-2013SE78053

PATIENT
  Sex: Female

DRUGS (5)
  1. TOPROL XL [Suspect]
     Indication: HEART RATE INCREASED
     Route: 048
  2. TOPROL XL [Suspect]
     Indication: HEART RATE INCREASED
     Route: 048
  3. TOPROL XL [Suspect]
     Indication: HEART RATE INCREASED
     Route: 048
  4. TOPROL XL [Suspect]
     Indication: HEART RATE INCREASED
     Route: 048
  5. TOPROL XL [Suspect]
     Indication: HEART RATE INCREASED
     Route: 048

REACTIONS (8)
  - Discomfort [Recovered/Resolved]
  - Malaise [Recovered/Resolved]
  - Endometriosis [Recovered/Resolved]
  - Adenoma benign [Recovered/Resolved]
  - Heart rate increased [Recovered/Resolved]
  - Heart rate decreased [Unknown]
  - Dizziness [Recovered/Resolved]
  - Off label use [Unknown]
